FAERS Safety Report 8727388 (Version 3)
Quarter: 2012Q4

REPORT INFORMATION
  Report Type: Report from Study
  Country: AU (occurrence: AU)
  Receive Date: 20120816
  Receipt Date: 20121029
  Transmission Date: 20130627
  Serious: Yes (Other)
  Sender: FDA-Public Use
  Company Number: AU-JNJFOC-20120805019

PATIENT
  Sex: Male

DRUGS (10)
  1. STELARA [Suspect]
     Indication: PSORIASIS
     Route: 058
     Dates: start: 20111028
  2. STELARA [Suspect]
     Indication: PSORIASIS
     Route: 058
     Dates: start: 20101228
  3. STELARA [Suspect]
     Indication: PSORIASIS
     Route: 058
     Dates: start: 20110322
  4. STELARA [Suspect]
     Indication: PSORIASIS
     Route: 058
     Dates: start: 20110621
  5. STELARA [Suspect]
     Indication: PSORIASIS
     Route: 058
     Dates: start: 20110913
  6. STELARA [Suspect]
     Indication: PSORIASIS
     Route: 058
     Dates: start: 20101208
  7. STELARA [Suspect]
     Indication: PSORIASIS
     Route: 058
     Dates: start: 20111206
  8. STELARA [Suspect]
     Indication: PSORIASIS
     Route: 058
     Dates: start: 20111223
  9. STELARA [Suspect]
     Indication: PSORIASIS
     Route: 058
     Dates: start: 20120413
  10. STELARA [Suspect]
     Indication: PSORIASIS
     Route: 058
     Dates: start: 20120711

REACTIONS (4)
  - Type 2 diabetes mellitus [Unknown]
  - Joint swelling [Recovered/Resolved]
  - Drug ineffective [Unknown]
  - Psoriasis [Recovering/Resolving]
